FAERS Safety Report 6789035-1 (Version None)
Quarter: 2010Q2

REPORT INFORMATION
  Report Type: 
  Country: None (occurrence: None)
  Receive Date: 20100623
  Receipt Date: 20080930
  Transmission Date: 20101027
  Serious: No
  Sender: FDA-Public Use
  Company Number: US-PFIZER INC-2008038657

PATIENT
  Sex: Female
  Weight: 55 kg

DRUGS (5)
  1. DEPO-PROVERA SUSPENSION/INJ [Suspect]
     Indication: CONTRACEPTION
     Dates: start: 19980101, end: 20070801
  2. DEPO-PROVERA SUSPENSION/INJ [Suspect]
     Indication: DYSMENORRHOEA
  3. SOMA [Concomitant]
  4. LORAZEPAM [Concomitant]
  5. EFFEXOR [Concomitant]

REACTIONS (1)
  - BREAST PAIN [None]
